FAERS Safety Report 9420190 (Version 1)
Quarter: 2013Q3

REPORT INFORMATION
  Report Type: Spontaneous
  Country: US (occurrence: US)
  Receive Date: 20130725
  Receipt Date: 20130725
  Transmission Date: 20140515
  Serious: Yes (Other)
  Sender: FDA-Public Use
  Company Number: US-CELGENEUS-163-21880-13043711

PATIENT
  Age: 81 Year
  Sex: Male

DRUGS (3)
  1. REVLIMID [Suspect]
     Indication: MYELODYSPLASTIC SYNDROME
     Dosage: 10 MILLIGRAM
     Route: 048
     Dates: start: 20130410, end: 20130413
  2. NEUPOGEN [Concomitant]
     Indication: MYELODYSPLASTIC SYNDROME
     Dosage: 480 MILLIGRAM
     Route: 058
     Dates: start: 20130215
  3. ARANESP [Concomitant]
     Indication: PRODUCT USED FOR UNKNOWN INDICATION
     Dosage: 300 MILLIGRAM
     Route: 058
     Dates: start: 20121217

REACTIONS (3)
  - Swelling face [Recovered/Resolved]
  - Eye oedema [Recovered/Resolved]
  - Urticaria [Unknown]
